FAERS Safety Report 18380963 (Version 1)
Quarter: 2020Q4

REPORT INFORMATION
  Report Type: Spontaneous
  Country: AU (occurrence: AU)
  Receive Date: 20201014
  Receipt Date: 20201014
  Transmission Date: 20210114
  Serious: No
  Sender: FDA-Public Use
  Company Number: AU-LUPIN PHARMACEUTICALS INC.-2020-06365

PATIENT
  Age: 58 Year
  Sex: Male

DRUGS (3)
  1. PHENYTOIN SODIUM. [Suspect]
     Active Substance: PHENYTOIN SODIUM
     Indication: PAIN
     Dosage: UNK
     Route: 065
  2. INDOMETHACIN [INDOMETACIN] [Suspect]
     Active Substance: INDOMETHACIN
     Dosage: 50 MILLIGRAM, TID (TABLETS)
     Route: 048
  3. INDOMETHACIN [INDOMETACIN] [Suspect]
     Active Substance: INDOMETHACIN
     Indication: PAIN
     Dosage: UNK (SUPPOSITORY)
     Route: 065

REACTIONS (1)
  - Gingival disorder [Unknown]
